FAERS Safety Report 17949806 (Version 1)
Quarter: 2020Q2

REPORT INFORMATION
  Report Type: Spontaneous
  Country: US (occurrence: US)
  Receive Date: 20200626
  Receipt Date: 20200626
  Transmission Date: 20200714
  Serious: Yes (Hospitalization)
  Sender: FDA-Public Use
  Company Number: None

PATIENT
  Age: 49 Year
  Sex: Female

DRUGS (1)
  1. BOTOX [Suspect]
     Active Substance: ONABOTULINUMTOXINA
     Indication: MIGRAINE
     Dosage: ?          OTHER FREQUENCY:EVERY 12 WEEKS;?          DOSAGE: 200 UNK
     Route: 030
     Dates: start: 20180323

REACTIONS (2)
  - Cerebrovascular accident [None]
  - Blindness unilateral [None]

NARRATIVE: CASE EVENT DATE: 20200213
